FAERS Safety Report 7662673-X (Version None)
Quarter: 2011Q3

REPORT INFORMATION
  Report Type: 
  Country: None (occurrence: None)
  Receive Date: 20110805
  Receipt Date: 20100825
  Transmission Date: 20111222
  Serious: No
  Sender: FDA-Public Use
  Company Number: US-ABBOTT-10P-163-0666100-00

PATIENT
  Sex: Male

DRUGS (2)
  1. NIASPAN [Suspect]
     Dosage: 2 TABS AT BEDTIME
  2. NIASPAN [Suspect]
     Indication: HYPERLIPIDAEMIA
     Dosage: AT BEDTIME
     Dates: start: 20100706

REACTIONS (3)
  - PRURITUS GENERALISED [None]
  - SKIN BURNING SENSATION [None]
  - FLUSHING [None]
